FAERS Safety Report 13662876 (Version 1)
Quarter: 2017Q2

REPORT INFORMATION
  Report Type: Spontaneous
  Country: US (occurrence: US)
  Receive Date: 20170619
  Receipt Date: 20170619
  Transmission Date: 20170830
  Serious: Yes (Hospitalization)
  Sender: FDA-Public Use
  Company Number: US-JNJFOC-20170607106

PATIENT
  Age: 57 Year
  Sex: Female

DRUGS (1)
  1. DIPHENHYDRAMINE HYDROCHLORIDE. [Suspect]
     Active Substance: DIPHENHYDRAMINE HYDROCHLORIDE
     Indication: INSOMNIA
     Dosage: TWENTY TO THIRTY, 25 MG TABLETS
     Route: 048

REACTIONS (6)
  - Depressed level of consciousness [Unknown]
  - Overdose [Unknown]
  - Intentional product use issue [Unknown]
  - Restless legs syndrome [Unknown]
  - Hypersomnia [Unknown]
  - Mental status changes [Unknown]
